FAERS Safety Report 18944839 (Version 1)
Quarter: 2021Q1

REPORT INFORMATION
  Report Type: Spontaneous
  Country: MX (occurrence: MX)
  Receive Date: 20210226
  Receipt Date: 20210226
  Transmission Date: 20210420
  Serious: Yes (Other)
  Sender: FDA-Public Use
  Company Number: MX-SUN PHARMACEUTICAL INDUSTRIES LTD-2021R1-282969

PATIENT
  Age: 24 Month
  Sex: Male

DRUGS (2)
  1. DOXYCYCLINE. [Suspect]
     Active Substance: DOXYCYCLINE
     Indication: PYREXIA
     Dosage: 2.2 MILLIGRAM/KILOGRAM, DAILY
     Route: 048
  2. DOXYCYCLINE. [Suspect]
     Active Substance: DOXYCYCLINE
     Indication: JAUNDICE

REACTIONS (2)
  - Gastric haemorrhage [Unknown]
  - Disease recurrence [Unknown]
